FAERS Safety Report 18355050 (Version 1)
Quarter: 2020Q4

REPORT INFORMATION
  Report Type: Spontaneous
  Country: US (occurrence: US)
  Receive Date: 20201007
  Receipt Date: 20201007
  Transmission Date: 20210114
  Serious: No
  Sender: FDA-Public Use
  Company Number: None

PATIENT
  Age: 46 Year
  Sex: Male
  Weight: 94.5 kg

DRUGS (2)
  1. LOSARTAN. [Concomitant]
     Active Substance: LOSARTAN
  2. NP THYROID [Suspect]
     Active Substance: LEVOTHYROXINE\LIOTHYRONINE
     Indication: THYROID DISORDER
     Dosage: ?          QUANTITY:180 TABLET(S);?
     Route: 048
     Dates: start: 20200103, end: 20201006

REACTIONS (10)
  - Fatigue [None]
  - Chest discomfort [None]
  - Arthralgia [None]
  - Headache [None]
  - Ill-defined disorder [None]
  - Myalgia [None]
  - Product substitution issue [None]
  - Muscle tightness [None]
  - Blood thyroid stimulating hormone increased [None]
  - Blood pressure increased [None]

NARRATIVE: CASE EVENT DATE: 20201001
